FAERS Safety Report 7432044-X (Version None)
Quarter: 2011Q2

REPORT INFORMATION
  Report Type: 
  Country: None (occurrence: None)
  Receive Date: 20110419
  Receipt Date: 20110419
  Transmission Date: 20111010
  Serious: Yes (Hospitalization)
  Sender: FDA-Public Use
  Company Number: None

PATIENT
  Age: 51 Year
  Sex: Female
  Weight: 77.1115 kg

DRUGS (1)
  1. SYNTHROID [Suspect]
     Dosage: .125 MG 1 6 DAYS/WK+1/2 ON PO
     Route: 048
     Dates: start: 19961201, end: 20110418

REACTIONS (2)
  - HEART RATE INCREASED [None]
  - FEELING ABNORMAL [None]
